FAERS Safety Report 8610428-1 (Version None)
Quarter: 2012Q3

REPORT INFORMATION
  Report Type: 
  Country: None (occurrence: None)
  Receive Date: 20120822
  Receipt Date: 20120816
  Transmission Date: 20120928
  Serious: No
  Sender: FDA-Public Use
  Company Number: US-PFIZER INC-2012202028

PATIENT
  Age: 67 Year
  Sex: Female
  Weight: 59.9 kg

DRUGS (2)
  1. ATORVASTATIN CALCIUM [Suspect]
     Indication: BLOOD TRIGLYCERIDES ABNORMAL
     Dosage: 10 MG, DAILY
     Dates: start: 20120810, end: 20120815
  2. IBUPROFEN [Suspect]
     Indication: MUSCLE SPASMS
     Dosage: 400 MG, 3X/DAY
     Dates: start: 20120815

REACTIONS (2)
  - DRUG INEFFECTIVE [None]
  - MUSCLE SPASMS [None]
